FAERS Safety Report 4906154-2 (Version None)
Quarter: 2006Q1

REPORT INFORMATION
  Report Type: 
  Country: None (occurrence: None)
  Receive Date: 20060207
  Receipt Date: 20060207
  Transmission Date: 20060701
  Serious: Yes (Hospitalization)
  Sender: FDA-Public Use
  Company Number: None

PATIENT
  Age: 79 Year
  Sex: Male
  Weight: 87.5442 kg

DRUGS (23)
  1. FUROSEMIDE [Suspect]
     Indication: OEDEMA
     Dosage: 20 MG DAILY
     Dates: start: 20050701, end: 20051003
  2. VALSARTAN [Suspect]
     Indication: DIABETES MELLITUS
     Dosage: 80 MG DAILY
     Dates: start: 20050701, end: 20051003
  3. VALSARTAN [Suspect]
     Indication: MYOCARDIAL INFARCTION
     Dosage: 80 MG DAILY
     Dates: start: 20050701, end: 20051003
  4. ASPIRIN [Concomitant]
  5. SERTRALINE HCL [Concomitant]
  6. ATENOLOL [Concomitant]
  7. TERAZOSIN HCL [Concomitant]
  8. ISOSORBIDE MONONITRATE SA [Concomitant]
  9. SIMVASTATIN [Concomitant]
  10. FUROSEMIDE [Concomitant]
  11. VALSARTAN [Concomitant]
  12. MOISTURIZING LOTION [Concomitant]
  13. ACCU-CHECK COMFORT CV [Concomitant]
  14. RANITIDINE HCL [Concomitant]
  15. FLUDROCORTISONE ACETATE [Concomitant]
  16. HUMULIN R [Concomitant]
  17. ALBUTEROL [Concomitant]
  18. BENZONATATE [Concomitant]
  19. CYANOCOBALAMIN [Concomitant]
  20. MULTI-VITAMIN [Concomitant]
  21. ALCOHOL PREP PAD [Concomitant]
  22. INSULIN SYRG [Concomitant]
  23. LANCET,TECHLITE [Concomitant]

REACTIONS (2)
  - DEHYDRATION [None]
  - HYPOTENSION [None]
